FAERS Safety Report 8591438-X (Version None)
Quarter: 2012Q3

REPORT INFORMATION
  Report Type: 
  Country: None (occurrence: None)
  Receive Date: 20120814
  Receipt Date: 20120802
  Transmission Date: 20120928
  Serious: Yes (Hospitalization, Other)
  Sender: FDA-Public Use
  Company Number: US-BAYER-2012-014798

PATIENT
  Age: 38 Year
  Sex: Female
  Weight: 72.517 kg

DRUGS (10)
  1. DROSPIRENONE AND ETHINYL ESTRADIOL [Suspect]
     Indication: MENSTRUATION IRREGULAR
     Dosage: UNK
     Route: 048
     Dates: start: 20090301, end: 20090901
  2. DROSPIRENONE AND ETHINYL ESTRADIOL [Suspect]
     Indication: DYSMENORRHOEA
  3. CALCIUM CARBONATE [Concomitant]
     Indication: DYSPEPSIA
     Dosage: UNK
     Dates: start: 20090901
  4. SYNTHROID [Concomitant]
     Indication: THYROID DISORDER
     Dosage: UNK
     Dates: start: 20020101
  5. ZITHROMAX [Concomitant]
  6. FLONASE [Concomitant]
     Indication: MULTIPLE ALLERGIES
     Dosage: UNK
     Dates: start: 20080101
  7. HYDROCODONE BITARTRATE [Concomitant]
     Indication: DYSMENORRHOEA
  8. CETIRIZINE [Concomitant]
     Dosage: 10 MG, UNK
  9. ADVIL [Concomitant]
  10. HYDROCODONE BITARTRATE [Concomitant]
     Indication: HEADACHE
     Dosage: UNK
     Dates: start: 20110101

REACTIONS (7)
  - CHOLECYSTITIS CHRONIC [None]
  - ABDOMINAL PAIN [None]
  - CHEST PAIN [None]
  - GALLBLADDER DISORDER [None]
  - VOMITING [None]
  - PAIN [None]
  - DIZZINESS [None]
